FAERS Safety Report 21856966 (Version 2)
Quarter: 2023Q1

REPORT INFORMATION
  Report Type: Report from Study
  Country: US (occurrence: US)
  Receive Date: 20230113
  Receipt Date: 20230330
  Transmission Date: 20230417
  Serious: No
  Sender: FDA-Public Use
  Company Number: US-ABBVIE-4218786

PATIENT
  Age: 61 Year
  Sex: Female

DRUGS (5)
  1. SKYRIZI [Suspect]
     Active Substance: RISANKIZUMAB-RZAA
     Indication: Psoriasis
     Dosage: WEEK 4
     Route: 058
     Dates: start: 202106, end: 202106
  2. SKYRIZI [Suspect]
     Active Substance: RISANKIZUMAB-RZAA
     Dosage: WEEK 0
     Route: 058
     Dates: start: 202105, end: 202105
  3. SKYRIZI [Suspect]
     Active Substance: RISANKIZUMAB-RZAA
     Dosage: FIRST ADMIN DATE: 2021
     Route: 058
  4. SKYRIZI [Suspect]
     Active Substance: RISANKIZUMAB-RZAA
     Route: 058
  5. SKYRIZI [Suspect]
     Active Substance: RISANKIZUMAB-RZAA
     Route: 058
     Dates: start: 202105

REACTIONS (9)
  - Pruritus [Unknown]
  - Ear infection [Unknown]
  - Sinusitis [Recovered/Resolved]
  - Ear pain [Not Recovered/Not Resolved]
  - General physical health deterioration [Unknown]
  - Hypersensitivity [Unknown]
  - Headache [Not Recovered/Not Resolved]
  - Dry skin [Unknown]
  - Balance disorder [Unknown]

NARRATIVE: CASE EVENT DATE: 20221101
